FAERS Safety Report 8514651-6 (Version None)
Quarter: 2012Q3

REPORT INFORMATION
  Report Type: 
  Country: None (occurrence: None)
  Receive Date: 20120717
  Receipt Date: 20120710
  Transmission Date: 20120928
  Serious: No
  Sender: FDA-Public Use
  Company Number: US-009507513-1207USA002702

PATIENT

DRUGS (3)
  1. VICTRELIS [Suspect]
     Dosage: 800 MG, TID
     Dates: start: 20120101
  2. PEG-INTRON [Suspect]
     Indication: HEPATITIS C
     Dosage: 150 MICROGRAM, QW
     Dates: start: 20110101
  3. REBETOL [Suspect]

REACTIONS (2)
  - PLATELET COUNT DECREASED [None]
  - INCORRECT DOSE ADMINISTERED [None]
